FAERS Safety Report 9894957 (Version 1)
Quarter: 2014Q1

REPORT INFORMATION
  Report Type: Spontaneous
  Country: US (occurrence: US)
  Receive Date: 20140213
  Receipt Date: 20140213
  Transmission Date: 20141002
  Serious: No
  Sender: FDA-Public Use
  Company Number: US-BRISTOL-MYERS SQUIBB COMPANY-17255233

PATIENT
  Age: 60 Year
  Sex: Female
  Weight: 104.31 kg

DRUGS (13)
  1. ABATACEPT SUBQ INJECTION 125MG/ML [Suspect]
     Dosage: 1 DF= 125MG/ML, 4 PACK
     Route: 058
  2. VITAMIN B6 [Concomitant]
     Dosage: TAB
  3. VITAMIN C [Concomitant]
     Dosage: CAP, CR
  4. CALCIUM [Concomitant]
     Dosage: 1 DF = 500 UNITS NOS
  5. VITAMIN E [Concomitant]
     Dosage: 1 DF = 100 UNITS NOS
  6. FISH OIL [Concomitant]
     Dosage: CAP
  7. FOLIC ACID [Concomitant]
     Dosage: CAP
  8. ASPIRIN [Concomitant]
     Dosage: TAB,ADLT
  9. MULTIVITAMIN [Concomitant]
     Dosage: TAB
  10. LEVOTHYROXIN [Concomitant]
     Dosage: TAB
  11. VITAMIN B12 [Concomitant]
     Dosage: INJ
  12. ZETIA [Concomitant]
     Dosage: TAB
  13. PEPCID [Concomitant]
     Dosage: TAB

REACTIONS (1)
  - Muscle spasms [Unknown]
